FAERS Safety Report 18967955 (Version 1)
Quarter: 2021Q1

REPORT INFORMATION
  Report Type: Spontaneous
  Country: GB (occurrence: GB)
  Receive Date: 20210304
  Receipt Date: 20210304
  Transmission Date: 20210420
  Serious: Yes (Other)
  Sender: FDA-Public Use
  Company Number: GB-ACCORD-218826

PATIENT
  Sex: Female

DRUGS (1)
  1. AMLODIPINE [Suspect]
     Active Substance: AMLODIPINE BESYLATE
     Indication: PRODUCT USED FOR UNKNOWN INDICATION
     Dosage: STRENGTH?10MG

REACTIONS (6)
  - Facial paralysis [Unknown]
  - Condition aggravated [Unknown]
  - Eye swelling [Unknown]
  - Swelling face [Unknown]
  - Incorrect dose administered [Unknown]
  - Product dispensing error [Unknown]
